FAERS Safety Report 16463035 (Version 1)
Quarter: 2019Q2

REPORT INFORMATION
  Report Type: Spontaneous
  Country: FR (occurrence: FR)
  Receive Date: 20190621
  Receipt Date: 20190621
  Transmission Date: 20190711
  Serious: Yes (Hospitalization, Other)
  Sender: FDA-Public Use
  Company Number: FR-TEVA-2019-FR-1066897

PATIENT
  Age: 52 Year
  Sex: Female
  Weight: 50 kg

DRUGS (8)
  1. ESTRADIOL (THERAMEX) [Suspect]
     Active Substance: ESTRADIOL
     Indication: HYPERANDROGENISM
     Dosage: 2 DOSAGE FORMS DAILY;
     Route: 048
  2. COVERSYL [Concomitant]
     Active Substance: PERINDOPRIL
     Indication: PRODUCT USED FOR UNKNOWN INDICATION
     Route: 048
  3. ANDROCUR 50 MG COMPRIME [Suspect]
     Active Substance: CYPROTERONE ACETATE
     Indication: HYPERANDROGENISM
     Dosage: 25 MILLIGRAM DAILY;
     Route: 048
     Dates: start: 1987, end: 20040929
  4. ESTROFEM (ESTRADIOL) [Suspect]
     Active Substance: ESTRADIOL
     Indication: HYPERANDROGENISM
     Route: 065
  5. OROMONE 2 MG COMPRIME PELLICULE [Suspect]
     Active Substance: ESTRADIOL
     Indication: HYPERANDROGENISM
     Route: 048
     Dates: start: 2016
  6. MOPRAL [Concomitant]
     Active Substance: OMEPRAZOLE
     Indication: PRODUCT USED FOR UNKNOWN INDICATION
     Route: 048
  7. DIFFU K [Concomitant]
     Active Substance: POTASSIUM CHLORIDE
     Indication: PRODUCT USED FOR UNKNOWN INDICATION
     Route: 048
  8. CACIT VITAMINE D3 [Concomitant]
     Active Substance: CALCIUM CARBONATE\CHOLECALCIFEROL
     Indication: PRODUCT USED FOR UNKNOWN INDICATION
     Route: 048

REACTIONS (1)
  - Meningioma [Not Recovered/Not Resolved]

NARRATIVE: CASE EVENT DATE: 20040929
